FAERS Safety Report 7913155-9 (Version None)
Quarter: 2011Q4

REPORT INFORMATION
  Report Type: 
  Country: None (occurrence: None)
  Receive Date: 20111114
  Receipt Date: 20111103
  Transmission Date: 20120403
  Serious: Yes (Other)
  Sender: FDA-Public Use
  Company Number: DK-ASTRAZENECA-2011SE66407

PATIENT
  Age: 14 Year
  Sex: Female

DRUGS (4)
  1. SINGULAIR [Concomitant]
  2. FORMOTEROL FUMARATE [Concomitant]
     Indication: ASTHMA
  3. BRICANYL [Concomitant]
     Indication: ASTHMA
  4. PULMICORT [Suspect]
     Indication: ASTHMA
     Route: 055

REACTIONS (5)
  - HALLUCINATION [None]
  - ANXIETY [None]
  - IRRITABILITY [None]
  - CONTUSION [None]
  - AGGRESSION [None]
